FAERS Safety Report 14158545 (Version 2)
Quarter: 2018Q4

REPORT INFORMATION
  Report Type: Spontaneous
  Country: FR (occurrence: FR)
  Receive Date: 20171106
  Receipt Date: 20181226
  Transmission Date: 20190204
  Serious: Yes (Hospitalization)
  Sender: FDA-Public Use
  Company Number: FR-AUROBINDO-AUR-APL-2017-42990

PATIENT
  Age: 49 Year
  Sex: Male
  Weight: 47 kg

DRUGS (5)
  1. CLINDAMYCIN. [Suspect]
     Active Substance: CLINDAMYCIN
     Indication: ABDOMINAL ABSCESS
     Dosage: 600 MG, DAILY
     Route: 048
     Dates: start: 20171019, end: 20171126
  2. FLUCONAZOLE ARROW [Suspect]
     Active Substance: FLUCONAZOLE
     Indication: ABDOMINAL ABSCESS
     Dosage: 400 MG, DAILY
     Route: 048
     Dates: start: 20171019, end: 20171126
  3. CLINDAMYCIN. [Suspect]
     Active Substance: CLINDAMYCIN
     Indication: ABDOMINAL ABSCESS
     Dosage: 600 MG, DAILY
     Route: 042
     Dates: start: 20171010, end: 20171019
  4. FLUCONAZOLE KABI [Suspect]
     Active Substance: FLUCONAZOLE
     Indication: ABDOMINAL ABSCESS
     Dosage: 400 MG, DAILY
     Route: 042
     Dates: start: 20171005, end: 20171019
  5. CEFTRIAXONE. [Suspect]
     Active Substance: CEFTRIAXONE
     Indication: ABDOMINAL ABSCESS
     Dosage: 4 G, DAILY
     Route: 042
     Dates: start: 20171005, end: 20171126

REACTIONS (1)
  - Blood alkaline phosphatase increased [Recovered/Resolved]

NARRATIVE: CASE EVENT DATE: 20171020
